FAERS Safety Report 19682297 (Version 5)
Quarter: 2022Q4

REPORT INFORMATION
  Report Type: Report from Study
  Country: US (occurrence: US)
  Receive Date: 20210810
  Receipt Date: 20221115
  Transmission Date: 20230113
  Serious: Yes (Other)
  Sender: FDA-Public Use
  Company Number: US-SHIRE-US201928994

PATIENT
  Age: 76 Year
  Sex: Female
  Weight: 104 kg

DRUGS (42)
  1. HUMAN IMMUNOGLOBULIN G [Suspect]
     Active Substance: HUMAN IMMUNOGLOBULIN G
     Indication: Primary immunodeficiency syndrome
     Dosage: 10 GRAM, 1/WEEK
     Route: 058
     Dates: start: 20170810
  2. HUMAN IMMUNOGLOBULIN G [Suspect]
     Active Substance: HUMAN IMMUNOGLOBULIN G
     Indication: Immunodeficiency common variable
     Dosage: 10 GRAM, 1/WEEK
     Route: 058
     Dates: start: 20170810
  3. HUMAN IMMUNOGLOBULIN G [Suspect]
     Active Substance: HUMAN IMMUNOGLOBULIN G
     Dosage: 10 GRAM, 1/WEEK
     Route: 058
     Dates: start: 20220810
  4. ACETAMINOPHEN [Concomitant]
     Active Substance: ACETAMINOPHEN
  5. DIPHENHYDRAMINE [Concomitant]
     Active Substance: DIPHENHYDRAMINE
  6. LIDOCAINE [Concomitant]
     Active Substance: LIDOCAINE
  7. PRILOCAINE [Concomitant]
     Active Substance: PRILOCAINE
  8. EPINEPHRINE [Concomitant]
     Active Substance: EPINEPHRINE
  9. OPTIVE SENSITIVE [Concomitant]
  10. PATANASE [Concomitant]
     Active Substance: OLOPATADINE HYDROCHLORIDE
  11. NASONEX [Concomitant]
     Active Substance: MOMETASONE FUROATE
  12. ACETAMINOPHEN AND CODEINE [Concomitant]
     Active Substance: ACETAMINOPHEN\CODEINE PHOSPHATE
  13. LEVEMIR [Concomitant]
     Active Substance: INSULIN DETEMIR
  14. VICTOZA [Concomitant]
     Active Substance: LIRAGLUTIDE
  15. NOVOLOG [Concomitant]
     Active Substance: INSULIN ASPART
  16. TAMOXIFEN [Concomitant]
     Active Substance: TAMOXIFEN
  17. DILTIAZEM [Concomitant]
     Active Substance: DILTIAZEM
  18. FIBER LAX [Concomitant]
     Active Substance: CALCIUM POLYCARBOPHIL
  19. SPIRONOLACTONE [Concomitant]
     Active Substance: SPIRONOLACTONE
  20. IPRATROPIUM BROMIDE [Concomitant]
     Active Substance: IPRATROPIUM BROMIDE
  21. MELATONIN [Concomitant]
     Active Substance: MELATONIN
  22. ALVESCO [Concomitant]
     Active Substance: CICLESONIDE
  23. RESTASIS [Concomitant]
     Active Substance: CYCLOSPORINE
  24. SALINE [Concomitant]
     Active Substance: SODIUM CHLORIDE
  25. ZYRTEC [Concomitant]
     Active Substance: CETIRIZINE HYDROCHLORIDE
  26. VITAMIN D3 [Concomitant]
     Active Substance: CHOLECALCIFEROL
  27. BIOTIN [Concomitant]
     Active Substance: BIOTIN
  28. MUCINEX [Concomitant]
     Active Substance: GUAIFENESIN
  29. LOVAZA [Concomitant]
     Active Substance: OMEGA-3-ACID ETHYL ESTERS
  30. NASALCROM A [Concomitant]
  31. BENAZEPRIL AND HYDROCHLOROTHIAZIDE [Concomitant]
     Active Substance: BENAZEPRIL HYDROCHLORIDE\HYDROCHLOROTHIAZIDE
  32. KETOCONAZOLE [Concomitant]
     Active Substance: KETOCONAZOLE
  33. SINGULAIR [Concomitant]
     Active Substance: MONTELUKAST SODIUM
  34. MAGNESIUM OXIDE [Concomitant]
     Active Substance: MAGNESIUM OXIDE
  35. BENADRYL [Concomitant]
     Active Substance: DIPHENHYDRAMINE HYDROCHLORIDE
  36. XOPENEX [Concomitant]
     Active Substance: LEVALBUTEROL HYDROCHLORIDE
  37. VITAMIN B COMPLEX [Concomitant]
     Active Substance: CYANOCOBALAMIN\DEXPANTHENOL\NIACINAMIDE\PYRIDOXINE HYDROCHLORIDE\RIBOFLAVIN 5^-PHOSPHATE SODIUM\THIA
  38. DIFLUCAN [Concomitant]
     Active Substance: FLUCONAZOLE
  39. LORAZEPAM [Concomitant]
     Active Substance: LORAZEPAM
  40. FLUCONAZOLE [Concomitant]
     Active Substance: FLUCONAZOLE
  41. SPIRONOLACTONE AND HYDROCHLOROTHIAZIDE [Concomitant]
     Active Substance: HYDROCHLOROTHIAZIDE\SPIRONOLACTONE
  42. IPRATROPIUM [Concomitant]
     Active Substance: IPRATROPIUM

REACTIONS (18)
  - Breast cancer [Unknown]
  - Hypoacusis [Unknown]
  - Dyspnoea [Recovering/Resolving]
  - Blood glucose decreased [Unknown]
  - Nervousness [Unknown]
  - Pruritus [Unknown]
  - Rash [Unknown]
  - Pyrexia [Unknown]
  - Multiple allergies [Unknown]
  - Liver disorder [Unknown]
  - Device leakage [Unknown]
  - Dizziness [Recovering/Resolving]
  - Headache [Unknown]
  - Palpitations [Unknown]
  - Renal disorder [Unknown]
  - Tremor [Unknown]
  - Chills [Unknown]
  - Incorrect dose administered [Unknown]

NARRATIVE: CASE EVENT DATE: 20221108
